FAERS Safety Report 9349619 (Version 1)
Quarter: 2013Q2

REPORT INFORMATION
  Report Type: Spontaneous
  Country: US (occurrence: US)
  Receive Date: 20130614
  Receipt Date: 20130614
  Transmission Date: 20140414
  Serious: No
  Sender: FDA-Public Use
  Company Number: US-B.I. PHARMACEUTICALS,INC./RIDGEFIELD-2013-BI-16142BP

PATIENT
  Sex: Male

DRUGS (2)
  1. ZANTAC COOL MINT (TABLETS) [Suspect]
     Indication: DYSPEPSIA
     Dosage: 150 MG
     Route: 048
     Dates: start: 20130604, end: 20130604
  2. ZANTAC COOL MINT (TABLETS) [Suspect]
     Indication: DYSPEPSIA

REACTIONS (2)
  - Oesophageal pain [Recovered/Resolved]
  - Dyspepsia [Recovered/Resolved]
